FAERS Safety Report 8606129 (Version 2)
Quarter: 2014Q2

REPORT INFORMATION
  Report Type: Spontaneous
  Country: US (occurrence: US)
  Receive Date: 20120608
  Receipt Date: 20140620
  Transmission Date: 20141212
  Serious: Yes (Other)
  Sender: FDA-Public Use
  Company Number: US-ASTRAZENECA-2011SE35163

PATIENT
  Age: 73 Year
  Sex: Female
  Weight: 82.6 kg

DRUGS (9)
  1. ATACAND [Suspect]
     Indication: BLOOD PRESSURE ABNORMAL
     Route: 048
     Dates: start: 1998
  2. NEXIUM [Suspect]
     Indication: GASTROOESOPHAGEAL REFLUX DISEASE
     Route: 048
  3. NEXIUM [Suspect]
     Indication: GASTROOESOPHAGEAL REFLUX DISEASE
     Route: 048
  4. PLENDIL [Suspect]
     Indication: BLOOD PRESSURE ABNORMAL
     Dosage: 5 MG AFTER DINNER DAILY
     Route: 048
  5. TORSEMIDE [Concomitant]
     Indication: BLOOD PRESSURE ABNORMAL
     Route: 048
  6. TORSEMIDE [Concomitant]
     Indication: DIURETIC THERAPY
     Route: 048
  7. TORSEMIDE [Concomitant]
     Indication: BLOOD PRESSURE ABNORMAL
     Route: 048
  8. TORSEMIDE [Concomitant]
     Indication: DIURETIC THERAPY
     Route: 048
  9. ASPIRIN [Concomitant]
     Route: 048

REACTIONS (13)
  - Cataract [Unknown]
  - Cataract [Unknown]
  - Multiple allergies [Unknown]
  - Throat irritation [Unknown]
  - Gastrooesophageal reflux disease [Recovering/Resolving]
  - Polyuria [Unknown]
  - Blood pressure inadequately controlled [Recovered/Resolved]
  - Vision blurred [Recovering/Resolving]
  - Abdominal pain upper [Recovering/Resolving]
  - Therapeutic response changed [Unknown]
  - Sinusitis [Unknown]
  - Cough [Unknown]
  - Intentional product misuse [Unknown]
